FAERS Safety Report 24216035 (Version 1)
Quarter: 2024Q3

REPORT INFORMATION
  Report Type: Spontaneous
  Country: US (occurrence: US)
  Receive Date: 20240816
  Receipt Date: 20240816
  Transmission Date: 20241017
  Serious: No
  Sender: STRIDES
  Company Number: US-STRIDES ARCOLAB LIMITED-2024SP009349

PATIENT
  Age: 92 Year
  Sex: Female

DRUGS (1)
  1. CYCLOSPORINE [Suspect]
     Active Substance: CYCLOSPORINE
     Indication: Transplant
     Dosage: UNK
     Route: 065

REACTIONS (5)
  - Full blood count abnormal [Unknown]
  - Product leakage [Unknown]
  - Product solubility abnormal [Unknown]
  - Product physical issue [Unknown]
  - Poor quality product administered [Unknown]
